FAERS Safety Report 5031303-8 (Version None)
Quarter: 2006Q2

REPORT INFORMATION
  Report Type: 
  Country: None (occurrence: None)
  Receive Date: 20060621
  Receipt Date: 20041105
  Transmission Date: 20061013
  Serious: Yes (Disabling)
  Sender: FDA-Public Use
  Company Number: 2004AP05719

PATIENT
  Age: 72 Year
  Sex: Male

DRUGS (25)
  1. IRESSA [Suspect]
     Indication: LUNG ADENOCARCINOMA
     Dosage: DISCONTINUED BECAUSE OF ESTBALISHMENT OF STABLE DISEASE
     Route: 048
  2. IRESSA [Suspect]
     Indication: NON-SMALL CELL LUNG CANCER
     Dosage: DISCONTINUED BECAUSE OF ESTBALISHMENT OF STABLE DISEASE
     Route: 048
  3. IRESSA [Suspect]
     Dosage: RESTARTED 65MONTHS AFTER INITIAL TRATMENT STOPPED DUE TO NEUTROPENIA AND THROMBOCYTOPENIA
     Route: 048
  4. IRESSA [Suspect]
     Dosage: RESTARTED 65MONTHS AFTER INITIAL TRATMENT STOPPED DUE TO NEUTROPENIA AND THROMBOCYTOPENIA
     Route: 048
  5. RADIOTHERAPY [Suspect]
  6. MOBIC [Concomitant]
     Route: 048
  7. CYTOTEC [Concomitant]
     Route: 048
  8. NAUZELIN [Concomitant]
     Route: 048
  9. MAGNESIUM OXIDE [Concomitant]
     Route: 048
  10. FLUITRAN [Concomitant]
     Route: 048
  11. BONALON [Concomitant]
     Route: 048
  12. MS CONTIN [Concomitant]
     Route: 048
  13. CARBOPLATIN [Concomitant]
     Dosage: 1 CYCLE
  14. CARBOPLATIN [Concomitant]
     Dosage: POST-OPERATIVE CHEMOTHERAPY
  15. CARBOPLATIN [Concomitant]
     Dosage: 62 MONTHS AFTER INITIAL TRATMENT AUC 4.5 ON DAY 1 OF CYCLE
  16. CISPLATIN [Concomitant]
     Dosage: POST-OPERATIVE CHEMOTHERAPY
  17. PACLITAXEL [Concomitant]
     Dosage: ONE CYCLE
  18. PACLITAXEL [Concomitant]
     Dosage: POST-OPERATIVE CHEMOTHERAPY
  19. PACLITAXEL [Concomitant]
     Dosage: 62 MONTHS AFTER INITIAL TREATMENT STARTED ON DAYS 1 AND 8 OF CYCLE
  20. IRINOTECAN [Concomitant]
     Dosage: POST-OPERATIVE CHEMOTHERAPY
  21. IRINOTECAN [Concomitant]
     Dosage: 55 DAYS AFTER INITIAL TREATMENT STARTED. FOR RECURRENCE IN MEDIASTINAL LYMPH NODE ON DAYS 1 AND 8.
  22. DOCETAXEL [Concomitant]
     Dosage: POST-OPERATIVE CHEMOTHERAPY
  23. GEMCITABINE [Concomitant]
     Dosage: POST-OPERATIVE CHEMOTHERAPY
  24. VINORELBINE [Concomitant]
     Dosage: POST-OPERATIVE CHEMOTHERAPY
  25. AMRUBICIN [Concomitant]
     Dosage: 55 DAYS AFTER INITIAL TREATMENT STARTED. FOR RECURRENCE IN MEDIASTINAL LYMPH NODE ON DAYS 1 AND 8.

REACTIONS (2)
  - ACUTE PROMYELOCYTIC LEUKAEMIA [None]
  - NEOPLASM RECURRENCE [None]
